FAERS Safety Report 5055069-0 (Version None)
Quarter: 2006Q3

REPORT INFORMATION
  Report Type: 
  Country: None (occurrence: None)
  Receive Date: 20060717
  Receipt Date: 20060705
  Transmission Date: 20061208
  Serious: Yes (Life-Threatening, Hospitalization, Disabling, Other)
  Sender: FDA-Public Use
  Company Number: 28660

PATIENT
  Age: 70 Year
  Sex: Female
  Weight: 80 kg

DRUGS (1)
  1. LEUCOVORIN CALCIUM [Suspect]
     Indication: COLON CANCER
     Dosage: 400 MG/M2 IV DAY 1
     Route: 042
     Dates: start: 20060509

REACTIONS (8)
  - BLOOD TEST ABNORMAL [None]
  - BODY TEMPERATURE INCREASED [None]
  - EJECTION FRACTION DECREASED [None]
  - HAEMODIALYSIS [None]
  - RENAL FAILURE ACUTE [None]
  - RENAL TUBULAR NECROSIS [None]
  - URINE OUTPUT DECREASED [None]
  - VOMITING [None]
